FAERS Safety Report 9324510 (Version 1)
Quarter: 2013Q2

REPORT INFORMATION
  Report Type: Spontaneous
  Country: US (occurrence: None)
  Receive Date: 20130531
  Receipt Date: 20130531
  Transmission Date: 20140414
  Serious: Yes (Other)
  Sender: FDA-Public Use
  Company Number: None

PATIENT
  Age: 42 Year
  Sex: Female
  Weight: 130.18 kg

DRUGS (1)
  1. GENERIC ZOLOFT [Suspect]

REACTIONS (3)
  - Therapeutic response unexpected with drug substitution [None]
  - Product substitution issue [None]
  - Drug ineffective [None]
